FAERS Safety Report 11915429 (Version 1)
Quarter: 2016Q1

REPORT INFORMATION
  Report Type: Spontaneous
  Country: US (occurrence: US)
  Receive Date: 20160114
  Receipt Date: 20160114
  Transmission Date: 20160526
  Serious: Yes (Hospitalization, Other)
  Sender: FDA-Public Use
  Company Number: US-TEVA-581337USA

PATIENT

DRUGS (1)
  1. METHOTREXATE [Suspect]
     Active Substance: METHOTREXATE
     Indication: ACUTE LYMPHOCYTIC LEUKAEMIA
     Dosage: 25MG IN 1 ML
     Route: 037
     Dates: start: 20150619

REACTIONS (4)
  - Product formulation issue [Unknown]
  - Leukoencephalopathy [Unknown]
  - Mental status changes [Unknown]
  - Dyskinesia [Unknown]

NARRATIVE: CASE EVENT DATE: 201506
